FAERS Safety Report 23091524 (Version 1)
Quarter: 2023Q4

REPORT INFORMATION
  Report Type: Report from Study
  Country: BR (occurrence: BR)
  Receive Date: 20231020
  Receipt Date: 20231020
  Transmission Date: 20240110
  Serious: Yes (Hospitalization)
  Sender: FDA-Public Use
  Company Number: BR-TEVA-2023-BR-2933293

PATIENT
  Age: 66 Year
  Sex: Male
  Weight: 79.2 kg

DRUGS (13)
  1. LENALIDOMIDE [Suspect]
     Active Substance: LENALIDOMIDE
     Indication: Follicular lymphoma
     Dosage: 20 MILLIGRAM DAILY;
     Route: 048
     Dates: start: 20230816
  2. EPCORITAMAB [Suspect]
     Active Substance: EPCORITAMAB
     Indication: Follicular lymphoma
     Dosage: .16 MILLIGRAM DAILY; PRIMING DOSE; C1, D1, TOTAL; 0.8 MG INTERMEDIATE DOSE; C1, D8, TOTAL; 48 MG FUL
     Route: 058
     Dates: start: 20230816, end: 20230816
  3. EPCORITAMAB [Suspect]
     Active Substance: EPCORITAMAB
     Dosage: PRIMING DOSE; C1, D1, TOTAL; 0.8 MG INTERMEDIATE DOSE; C1, D8, TOTAL; 48 MG FULL DOSE; C1, D15 + 22,
     Route: 058
     Dates: start: 20230823, end: 20230823
  4. EPCORITAMAB [Suspect]
     Active Substance: EPCORITAMAB
     Dosage: PRIMING DOSE; C1, D1, TOTAL; 0.8 MG INTERMEDIATE DOSE; C1, D8, TOTAL; 48 MG FULL DOSE; C1, D15 + 22,
     Route: 058
     Dates: start: 20230830, end: 20230830
  5. EPCORITAMAB [Suspect]
     Active Substance: EPCORITAMAB
     Dosage: PRIMING DOSE; C1, D1, TOTAL; 0.8 MG INTERMEDIATE DOSE; C1, D8, TOTAL; 48 MG FULL DOSE; C1, D15 + 22,
     Route: 058
     Dates: start: 20230913
  6. RITUXIMAB [Suspect]
     Active Substance: RITUXIMAB
     Indication: Follicular lymphoma
     Dosage: 747.4 MILLIGRAM DAILY; EVERY 1 WEEKS
     Route: 042
     Dates: start: 20230816, end: 20230906
  7. RITUXIMAB [Suspect]
     Active Substance: RITUXIMAB
     Dosage: 738.5 MILLIGRAM DAILY; EVERY 4 WEEKS
     Route: 042
     Dates: start: 20230913
  8. ALLOPURINOL [Concomitant]
     Active Substance: ALLOPURINOL
     Indication: Prophylaxis
     Dosage: 300 MG, 3/DAYS
     Dates: start: 20230816
  9. TRIMETHOPRIM SULFATE [Concomitant]
     Active Substance: TRIMETHOPRIM SULFATE
     Indication: Antifungal prophylaxis
     Dosage: 400/80MG, EVERY 1 DAYS
     Dates: start: 20230816
  10. ACYCLOVIR [Concomitant]
     Active Substance: ACYCLOVIR
     Indication: Antiviral prophylaxis
     Dosage: 400 MG, 2/DAYS
     Dates: start: 20230816
  11. ACETAMINOPHEN [Concomitant]
     Active Substance: ACETAMINOPHEN
     Indication: Prophylaxis
     Dosage: 1000 MG, AS NECESSARY
     Dates: start: 20230816
  12. DIPHENHYDRAMINE [Concomitant]
     Active Substance: DIPHENHYDRAMINE
     Indication: Prophylaxis
     Dosage: 50 MG, AS NECESSARY
     Dates: start: 20230816
  13. DEXAMETHASONE [Concomitant]
     Active Substance: DEXAMETHASONE
     Indication: Prophylaxis
     Dosage: 15 MG, AS NECESSARY
     Dates: start: 20230816

REACTIONS (4)
  - Febrile neutropenia [Recovered/Resolved]
  - Pyrexia [Not Recovered/Not Resolved]
  - Asthenia [Not Recovered/Not Resolved]
  - Cytomegalovirus infection [Recovered/Resolved]

NARRATIVE: CASE EVENT DATE: 20230925
